FAERS Safety Report 9181200 (Version 2)
Quarter: 2013Q1

REPORT INFORMATION
  Report Type: Spontaneous
  Country: US (occurrence: US)
  Receive Date: 20130322
  Receipt Date: 20130322
  Transmission Date: 20140127
  Serious: No
  Sender: FDA-Public Use
  Company Number: US-MYLANLABS-2012S1018494

PATIENT
  Sex: Female
  Weight: 68.04 kg

DRUGS (4)
  1. EMSAM [Suspect]
     Indication: BIPOLAR DISORDER
     Route: 062
     Dates: start: 201203
  2. L-METHYLFOLATE CALCIUM [Concomitant]
  3. NEURONTIN [Concomitant]
     Indication: FIBROMYALGIA
  4. SEROQUEL [Concomitant]
     Indication: BIPOLAR DISORDER

REACTIONS (3)
  - Dyspnoea [Not Recovered/Not Resolved]
  - Heart rate increased [Not Recovered/Not Resolved]
  - Hyperhidrosis [Not Recovered/Not Resolved]
